FAERS Safety Report 8136253-6 (Version None)
Quarter: 2012Q1

REPORT INFORMATION
  Report Type: 
  Country: None (occurrence: None)
  Receive Date: 20120214
  Receipt Date: 20120130
  Transmission Date: 20120608
  Serious: Yes (Other)
  Sender: FDA-Public Use
  Company Number: DE-WATSON-2012-02069

PATIENT
  Age: 59 Year
  Sex: Female

DRUGS (5)
  1. PREDNISOLONE [Suspect]
     Indication: ANAEMIA HAEMOLYTIC AUTOIMMUNE
     Dosage: UNK
     Route: 065
     Dates: start: 20090101, end: 20090401
  2. PREDNISOLONE [Suspect]
     Dosage: PREDNISOLONE WAS THEN STOPPED
     Route: 065
     Dates: start: 20091101, end: 20091201
  3. CYCLOSPORINE [Suspect]
     Indication: ANAEMIA HAEMOLYTIC AUTOIMMUNE
     Route: 065
  4. PREDNISOLONE [Suspect]
     Dosage: DOSE INCREASED
     Route: 065
     Dates: start: 20090401, end: 20090801
  5. PREDNISOLONE [Suspect]
     Dosage: LOW DOSE
     Route: 065
     Dates: start: 20090801, end: 20091101

REACTIONS (3)
  - ARTHRITIS [None]
  - DRUG INEFFECTIVE [None]
  - PSYCHIATRIC SYMPTOM [None]
